FAERS Safety Report 9080537 (Version 1)
Quarter: 2013Q1

REPORT INFORMATION
  Report Type: Report from Study
  Country: US (occurrence: US)
  Receive Date: 20130130
  Receipt Date: 20130130
  Transmission Date: 20140127
  Serious: No
  Sender: FDA-Public Use
  Company Number: US-ABBOTT-12P-163-0959793-00

PATIENT
  Age: 29 Year
  Sex: Female

DRUGS (7)
  1. HUMIRA 40 MG/0.8 ML PEN [Suspect]
     Indication: CROHN^S DISEASE
     Dosage: LOADING DOSE ONLY
     Dates: start: 20120711
  2. RISPERDAL [Concomitant]
     Indication: BIPOLAR DISORDER
     Dosage: AT BEDTIME
  3. KLONOPIN [Concomitant]
     Indication: INSOMNIA
  4. KLONOPIN [Concomitant]
     Indication: ANXIETY
  5. PROZAC [Concomitant]
     Indication: BIPOLAR DISORDER
     Dosage: IN THE MORNING
  6. ASACOL [Concomitant]
     Indication: CROHN^S DISEASE
     Dosage: 3-400MG TAB 3 TIMES A DAY
  7. PRENATAL VITAMINS [Concomitant]
     Indication: PRODUCT USED FOR UNKNOWN INDICATION
     Dosage: EVERY DAY

REACTIONS (4)
  - Sinus congestion [Recovering/Resolving]
  - Pyrexia [Recovering/Resolving]
  - Cough [Recovering/Resolving]
  - Sinusitis [Recovering/Resolving]
